FAERS Safety Report 13341904 (Version 1)
Quarter: 2017Q1

REPORT INFORMATION
  Report Type: Spontaneous
  Country: GB (occurrence: GB)
  Receive Date: 20170316
  Receipt Date: 20170316
  Transmission Date: 20170428
  Serious: Yes (Other)
  Sender: FDA-Public Use
  Company Number: GB-NOVOPROD-535408

PATIENT
  Age: 65 Year
  Sex: Female
  Weight: 86 kg

DRUGS (16)
  1. AMLODIPINE [Concomitant]
     Active Substance: AMLODIPINE BESYLATE
     Dosage: 1 TAB, QD
     Dates: start: 20170224
  2. RAMIPRIL. [Concomitant]
     Active Substance: RAMIPRIL
     Dosage: 1 TAB, QD
     Dates: start: 20161104
  3. NAPROXEN. [Concomitant]
     Active Substance: NAPROXEN
     Dosage: 1 TAB, BID
     Dates: start: 20161104
  4. TRESIBA [Concomitant]
     Active Substance: INSULIN DEGLUDEC
     Dosage: 1 TAB, QD
     Dates: start: 20161213
  5. XULTOPHY 100/3.6 [Suspect]
     Active Substance: INSULIN DEGLUDEC\LIRAGLUTIDE
     Indication: PRODUCT USED FOR UNKNOWN INDICATION
     Dosage: UNK
     Route: 058
     Dates: start: 20170224
  6. ATENOLOL. [Concomitant]
     Active Substance: ATENOLOL
     Dosage: 1 TAB, BID
     Dates: start: 20161104
  7. ATORVASTATIN [Concomitant]
     Active Substance: ATORVASTATIN
     Dosage: 1 TAB, QD
     Dates: start: 20161104
  8. DICLOFENAC SODIUM. [Concomitant]
     Active Substance: DICLOFENAC SODIUM
     Dosage: 1 TAB, BID
     Dates: start: 20151217
  9. FERROUS GLUCONATE [Concomitant]
     Active Substance: FERROUS GLUCONATE
     Dosage: 1 TAB, QD
     Dates: start: 20161104
  10. DIHYDROCODEINE [Concomitant]
     Active Substance: DIHYDROCODEINE
     Dosage: 2 TAB, QID
     Dates: start: 20161104
  11. METFORMIN [Concomitant]
     Active Substance: METFORMIN HYDROCHLORIDE
     Dosage: 1 TAB, BID
     Dates: start: 20161104
  12. OMEPRAZOLE. [Concomitant]
     Active Substance: OMEPRAZOLE
     Dosage: 2 TAB, QD
     Dates: start: 20161104
  13. PARACETAMOL [Concomitant]
     Active Substance: ACETAMINOPHEN
     Dosage: 2 TAB, QID
     Dates: start: 20161104
  14. ZINC OXIDE. [Concomitant]
     Active Substance: ZINC OXIDE
     Dosage: USE AS DIRECTED
     Dates: start: 20061009
  15. CLOTRIMAZOLE. [Concomitant]
     Active Substance: CLOTRIMAZOLE
     Dosage: APPLY 2-3 TIMES/DAY
     Dates: start: 20161114
  16. FUROSEMIDE. [Concomitant]
     Active Substance: FUROSEMIDE
     Dosage: EACH MORNING
     Dates: start: 20161104

REACTIONS (2)
  - Hypercholesterolaemia [Unknown]
  - Hypertension [Unknown]

NARRATIVE: CASE EVENT DATE: 20170224
